FAERS Safety Report 8406949-7 (Version None)
Quarter: 2012Q2

REPORT INFORMATION
  Report Type: 
  Country: None (occurrence: None)
  Receive Date: 20120529
  Receipt Date: 20060105
  Transmission Date: 20120825
  Serious: Yes (Death, Hospitalization, Other)
  Sender: FDA-Public Use
  Company Number: 02100-JPN-05-0099

PATIENT
  Age: 96 Year
  Sex: Male

DRUGS (4)
  1. LOXONIN (LOXOPROFEN SODIUM) [Concomitant]
  2. PLETAL [Suspect]
     Indication: LACUNAR INFARCTION
     Dosage: 100 MG, BID, ORAL
     Route: 048
     Dates: start: 20040221, end: 20051002
  3. CEROCRAL (IFENPRODIL TARTRATE) [Concomitant]
  4. BUFFERIN [Concomitant]

REACTIONS (7)
  - WHITE BLOOD CELL COUNT INCREASED [None]
  - HAEMATOCRIT DECREASED [None]
  - BLOOD ALBUMIN DECREASED [None]
  - HAEMOGLOBIN DECREASED [None]
  - DEPRESSED LEVEL OF CONSCIOUSNESS [None]
  - PNEUMONIA [None]
  - BLOOD CHLORIDE DECREASED [None]
